FAERS Safety Report 9392302 (Version 4)
Quarter: 2013Q3

REPORT INFORMATION
  Report Type: Spontaneous
  Country: US (occurrence: US)
  Receive Date: 20130710
  Receipt Date: 20130927
  Transmission Date: 20140515
  Serious: No
  Sender: FDA-Public Use
  Company Number: US-009507513-1306USA011668

PATIENT
  Age: 20 Year
  Sex: Female
  Weight: 109.3 kg

DRUGS (3)
  1. IMPLANON [Suspect]
     Indication: CONTRACEPTION
     Dosage: UNK
     Route: 059
     Dates: start: 201009
  2. WELLBUTRIN [Concomitant]
  3. LAMOTRIGINE [Concomitant]

REACTIONS (4)
  - Device deployment issue [Unknown]
  - Device difficult to use [Not Recovered/Not Resolved]
  - Medical device complication [Unknown]
  - Medical device complication [Not Recovered/Not Resolved]
